FAERS Safety Report 5904982-8 (Version None)
Quarter: 2008Q3

REPORT INFORMATION
  Report Type: 
  Country: None (occurrence: None)
  Receive Date: 20080909
  Receipt Date: 20080422
  Transmission Date: 20090109
  Serious: Yes (Disabling)
  Sender: FDA-Public Use
  Company Number: 163-20785-08030596

PATIENT
  Age: 31 Year
  Sex: Female

DRUGS (3)
  1. THALOMID [Suspect]
     Indication: BEHCET'S SYNDROME
     Dosage: 200 MG, 2 IN 1 D, ORAL
     Route: 048
     Dates: start: 20061220, end: 20080320
  2. REMICADE [Concomitant]
  3. ENBREL [Concomitant]

REACTIONS (3)
  - MEMORY IMPAIRMENT [None]
  - NEUROPATHY PERIPHERAL [None]
  - PERIPHERAL SENSORY NEUROPATHY [None]
